FAERS Safety Report 6209486-3 (Version None)
Quarter: 2009Q2

REPORT INFORMATION
  Report Type: 
  Country: None (occurrence: None)
  Receive Date: 20090527
  Receipt Date: 20090521
  Transmission Date: 20091009
  Serious: Yes (Hospitalization)
  Sender: FDA-Public Use
  Company Number: GB-1169652

PATIENT
  Age: 65 Year
  Sex: Female

DRUGS (5)
  1. AZOPT [Suspect]
     Indication: GLAUCOMA
     Dosage: OPHTHALMIC
     Route: 047
  2. SERETIDE    (FLUTICASONE PROPIONATE W/SALMETEROL) [Concomitant]
  3. VENTOLIN [Concomitant]
  4. XALATAN [Concomitant]
  5. ACETAMINOPHEN [Concomitant]

REACTIONS (1)
  - NASOPHARYNGITIS [None]
